FAERS Safety Report 7802689-3 (Version None)
Quarter: 2011Q4

REPORT INFORMATION
  Report Type: 
  Country: None (occurrence: None)
  Receive Date: 20111007
  Receipt Date: 20111003
  Transmission Date: 20120403
  Serious: Yes (Death)
  Sender: FDA-Public Use
  Company Number: PHHY2011CA87414

PATIENT
  Weight: 53.968 kg

DRUGS (8)
  1. DIDROCAL [Concomitant]
  2. FORTEO [Concomitant]
  3. VITAMIN D [Concomitant]
  4. ZOLEDRONOC ACID [Suspect]
  5. MIACALCIN [Concomitant]
  6. CALCIUM CARBONATE [Concomitant]
  7. EVISTA [Concomitant]
  8. HORMONES [Concomitant]

REACTIONS (1)
  - DEATH [None]
